FAERS Safety Report 9176531 (Version 1)
Quarter: 2013Q1

REPORT INFORMATION
  Report Type: Spontaneous
  Country: JP (occurrence: None)
  Receive Date: 20130319
  Receipt Date: 20130319
  Transmission Date: 20140127
  Serious: Yes (Other)
  Sender: FDA-Public Use
  Company Number: ENT 2013-0053

PATIENT
  Age: 80 Year
  Sex: Female

DRUGS (1)
  1. COMTAN (ENTACAPONE) [Suspect]
     Dosage: - - STOPPED
     Route: 048

REACTIONS (4)
  - Neuroleptic malignant syndrome [None]
  - Vomiting [None]
  - Diarrhoea [None]
  - Myoglobin blood increased [None]
